FAERS Safety Report 5104451-1 (Version None)
Quarter: 2006Q3

REPORT INFORMATION
  Report Type: 
  Country: None (occurrence: None)
  Receive Date: 20060914
  Receipt Date: 20060908
  Transmission Date: 20061208
  Serious: Yes (Other)
  Sender: FDA-Public Use
  Company Number: US-BRISTOL-MYERS SQUIBB COMPANY-13503560

PATIENT
  Age: 50 Year
  Sex: Female

DRUGS (15)
  1. ERBITUX [Suspect]
     Indication: TONGUE NEOPLASM MALIGNANT STAGE UNSPECIFIED
     Dosage: LOADING DOSE: 450 MG/M2
     Dates: start: 20060310, end: 20060901
  2. CARBOPLATIN [Suspect]
     Indication: TONGUE NEOPLASM MALIGNANT STAGE UNSPECIFIED
  3. TAXOL [Suspect]
     Indication: TONGUE NEOPLASM MALIGNANT STAGE UNSPECIFIED
  4. RADIATION THERAPY [Suspect]
     Indication: TONGUE NEOPLASM MALIGNANT STAGE UNSPECIFIED
  5. DEXAMETHASONE TAB [Concomitant]
  6. BENADRYL [Concomitant]
     Route: 042
  7. TAGAMET [Concomitant]
     Indication: PREMEDICATION
  8. EFFEXOR [Concomitant]
  9. SYNTHROID [Concomitant]
  10. ESTRACE [Concomitant]
  11. ACYCLOVIR [Concomitant]
  12. CLINDAMYCIN [Concomitant]
     Route: 061
  13. ALOXI [Concomitant]
  14. FENTANYL [Concomitant]
  15. DOXYCYCLINE [Concomitant]

REACTIONS (4)
  - ALOPECIA [None]
  - HIRSUTISM [None]
  - MUCOSAL INFLAMMATION [None]
  - RASH [None]
